FAERS Safety Report 15299305 (Version 1)
Quarter: 2018Q3

REPORT INFORMATION
  Report Type: Spontaneous
  Country: US (occurrence: US)
  Receive Date: 20180808
  Receipt Date: 20180808
  Transmission Date: 20181010
  Serious: Yes (Disabling)
  Sender: FDA-Public Use
  Company Number: None

PATIENT
  Age: 45 Year
  Sex: Female
  Weight: 83.25 kg

DRUGS (1)
  1. OMNISCAN [Suspect]
     Active Substance: GADODIAMIDE
     Indication: NUCLEAR MAGNETIC RESONANCE IMAGING
     Route: 042
     Dates: start: 20180518, end: 20180518

REACTIONS (11)
  - Chest pain [None]
  - Arthralgia [None]
  - Dyskinesia [None]
  - Paraesthesia [None]
  - Feeling abnormal [None]
  - Pruritus [None]
  - Spinal pain [None]
  - Emotional disorder [None]
  - Gastric disorder [None]
  - Mood swings [None]
  - Ligament pain [None]

NARRATIVE: CASE EVENT DATE: 20180518
